FAERS Safety Report 9233428 (Version 1)
Quarter: 2013Q2

REPORT INFORMATION
  Report Type: Spontaneous
  Country: US (occurrence: US)
  Receive Date: 20130416
  Receipt Date: 20130416
  Transmission Date: 20140414
  Serious: Yes (Other)
  Sender: FDA-Public Use
  Company Number: US-PFIZER INC-2013115406

PATIENT
  Sex: Female

DRUGS (1)
  1. REVATIO [Suspect]
     Dosage: UNK

REACTIONS (5)
  - Pulmonary hypertension [Unknown]
  - Dyspnoea [Unknown]
  - Choking sensation [Unknown]
  - Neuropathy peripheral [Unknown]
  - Insomnia [Unknown]
